FAERS Safety Report 9492071 (Version 2)
Quarter: 2013Q3

REPORT INFORMATION
  Report Type: Spontaneous
  Country: US (occurrence: US)
  Receive Date: 20130830
  Receipt Date: 20130926
  Transmission Date: 20140515
  Serious: Yes (Disabling)
  Sender: FDA-Public Use
  Company Number: US-TEVA-429403USA

PATIENT
  Age: 38 Year
  Sex: Female
  Weight: 81.72 kg

DRUGS (1)
  1. PARAGARD 380A [Suspect]
     Indication: CONTRACEPTION
     Route: 015
     Dates: start: 201210, end: 20130828

REACTIONS (10)
  - Activities of daily living impaired [Recovered/Resolved]
  - Muscle spasms [Not Recovered/Not Resolved]
  - Pain [Not Recovered/Not Resolved]
  - Eczema [Unknown]
  - Pelvic pain [Recovered/Resolved]
  - Dysmenorrhoea [Recovered/Resolved]
  - Weight increased [Unknown]
  - Ovarian cyst [Unknown]
  - Abdominal pain [Unknown]
  - Product quality issue [Unknown]
